FAERS Safety Report 6837281-0 (Version None)
Quarter: 2010Q3

REPORT INFORMATION
  Report Type: 
  Country: None (occurrence: None)
  Receive Date: 20100713
  Receipt Date: 20070508
  Transmission Date: 20110219
  Serious: No
  Sender: FDA-Public Use
  Company Number: US-PFIZER INC-2007038154

PATIENT
  Sex: Male
  Weight: 108.86 kg

DRUGS (9)
  1. CHANTIX [Suspect]
     Indication: SMOKING CESSATION THERAPY
     Route: 048
     Dates: start: 20070508
  2. PLAVIX [Concomitant]
  3. PHENOBARBITAL [Concomitant]
     Indication: CONVULSION
  4. KLONOPIN [Concomitant]
  5. ATIVAN [Concomitant]
     Indication: CONVULSION
  6. ACETYLSALICYLIC ACID [Concomitant]
  7. LIPITOR [Concomitant]
  8. LOPRESSOR [Concomitant]
  9. DIOVAN HCT [Concomitant]

REACTIONS (2)
  - ABDOMINAL PAIN [None]
  - HEADACHE [None]
